FAERS Safety Report 14433358 (Version 1)
Quarter: 2018Q1

REPORT INFORMATION
  Report Type: Spontaneous
  Country: US (occurrence: US)
  Receive Date: 20180124
  Receipt Date: 20180124
  Transmission Date: 20180509
  Serious: No
  Sender: FDA-Public Use
  Company Number: US-PCCINC-2017-PEL-003118

PATIENT

DRUGS (8)
  1. GABLOFEN [Suspect]
     Active Substance: BACLOFEN
     Dosage: 165.2 ?G, QD CONTINUOUS
     Route: 037
     Dates: start: 20170214
  2. NORCO [Concomitant]
     Active Substance: ACETAMINOPHEN\HYDROCODONE BITARTRATE
     Dosage: 5/325 MG, UNK
     Route: 065
  3. GABLOFEN [Suspect]
     Active Substance: BACLOFEN
     Dosage: 240 ?G, QD
     Route: 037
  4. BACLOFEN. [Concomitant]
     Active Substance: BACLOFEN
     Dosage: 20 MG, UNK
     Route: 048
  5. GABLOFEN [Suspect]
     Active Substance: BACLOFEN
     Indication: MUSCLE SPASTICITY
     Dosage: 183 ?G, QD
     Route: 037
  6. VALIUM [Concomitant]
     Active Substance: DIAZEPAM
     Dosage: 10 MG, UNK
     Route: 065
  7. FENTANYL. [Concomitant]
     Active Substance: FENTANYL
     Dosage: 12 ?G/HR
     Route: 062
  8. MARIJUANA [Concomitant]
     Active Substance: CANNABIS SATIVA SUBSP. INDICA TOP
     Dosage: UNK
     Route: 065

REACTIONS (4)
  - Condition aggravated [None]
  - Device issue [Recovered/Resolved]
  - Urinary tract infection [None]
  - Diarrhoea [None]

NARRATIVE: CASE EVENT DATE: 20170506
